FAERS Safety Report 18481286 (Version 1)
Quarter: 2020Q4

REPORT INFORMATION
  Report Type: Spontaneous
  Country: FR (occurrence: FR)
  Receive Date: 20201109
  Receipt Date: 20201109
  Transmission Date: 20210114
  Serious: Yes (Other)
  Sender: FDA-Public Use
  Company Number: FR-PFIZER INC-2020428347

PATIENT
  Age: 60 Year
  Sex: Female
  Weight: 68 kg

DRUGS (19)
  1. PRINCI B [PYRIDOXINE HYDROCHLORIDE;THIAMINE MONONITRATE] [Concomitant]
     Active Substance: PYRIDOXINE\THIAMINE
     Dosage: UNK
     Route: 048
     Dates: start: 20201001, end: 20201007
  2. HYDROCORTISONE. [Concomitant]
     Active Substance: HYDROCORTISONE
     Dosage: UNK
     Route: 042
     Dates: start: 20200930
  3. MYCOPHENOLATE MOFETIL. [Concomitant]
     Active Substance: MYCOPHENOLATE MOFETIL
     Dosage: UNK
     Route: 048
     Dates: start: 20201001
  4. TIORFAN [Suspect]
     Active Substance: RACECADOTRIL
     Indication: DIARRHOEA
     Dosage: 200 MG, AS NEEDED
     Route: 048
     Dates: start: 202009, end: 20201003
  5. METOCLOPRAMIDE. [Suspect]
     Active Substance: METOCLOPRAMIDE
     Indication: PROPHYLAXIS OF NAUSEA AND VOMITING
     Dosage: 60 MG, 1X/DAY
     Route: 042
     Dates: start: 202009, end: 20201005
  6. TITANOREINES A LA LIDOCAINE [Concomitant]
     Dosage: UNK
     Route: 054
     Dates: end: 20201003
  7. LOSARTAN POTASSIUM. [Concomitant]
     Active Substance: LOSARTAN POTASSIUM
     Dosage: UNK
     Route: 048
  8. APREPITANT. [Suspect]
     Active Substance: APREPITANT
     Indication: PROPHYLAXIS OF NAUSEA AND VOMITING
     Dosage: 80 MG, 1X/DAY
     Route: 048
     Dates: start: 202009, end: 20201003
  9. NEFOPAM [Concomitant]
     Active Substance: NEFOPAM
     Dosage: UNK
     Route: 042
     Dates: start: 20201002
  10. TIENAM [Suspect]
     Active Substance: CILASTATIN SODIUM\IMIPENEM
     Indication: ESCHERICHIA INFECTION
     Dosage: 3 G, 1X/DAY
     Route: 042
     Dates: start: 20201002, end: 20201003
  11. POLARAMINE [Concomitant]
     Active Substance: DEXCHLORPHENIRAMINE MALEATE
     Dosage: UNK
     Route: 042
  12. VALACICLOVIR [Concomitant]
     Active Substance: VALACYCLOVIR HYDROCHLORIDE
     Dosage: UNK
     Route: 048
     Dates: start: 202009, end: 20201005
  13. FLUCONAZOLE. [Concomitant]
     Active Substance: FLUCONAZOLE
     Dosage: UNK
     Route: 042
     Dates: start: 20201001, end: 20201009
  14. AMLODIPINE [Suspect]
     Active Substance: AMLODIPINE BESYLATE
     Indication: HYPERTENSION
     Dosage: 5 MG, 1X/DAY
     Route: 048
     Dates: start: 20200902, end: 20201005
  15. ONDANSETRON HYDROCHLORIDE. [Suspect]
     Active Substance: ONDANSETRON HYDROCHLORIDE
     Indication: PROPHYLAXIS OF NAUSEA AND VOMITING
     Dosage: 8 MG, 1X/DAY
     Route: 042
     Dates: start: 202009, end: 20201004
  16. TENOFOVIR DISOPROXIL [Concomitant]
     Active Substance: TENOFOVIR DISOPROXIL
     Dosage: UNK
     Route: 048
     Dates: start: 20200916
  17. CICLOSPORINE [Concomitant]
     Active Substance: CYCLOSPORINE
     Dosage: UNK
     Route: 042
     Dates: start: 20201001
  18. LEVOTHYROXINE SODIQUE [Concomitant]
     Active Substance: LEVOTHYROXINE SODIUM
     Dosage: UNK
     Route: 048
  19. CHOLURSO [Concomitant]
     Active Substance: URSODIOL
     Route: 048

REACTIONS (2)
  - Hallucinations, mixed [Recovered/Resolved]
  - Confusional state [Recovered/Resolved]

NARRATIVE: CASE EVENT DATE: 20201003
